FAERS Safety Report 9196288 (Version 1)
Quarter: 2013Q1

REPORT INFORMATION
  Report Type: Spontaneous
  Country: BR (occurrence: BR)
  Receive Date: 20130328
  Receipt Date: 20130328
  Transmission Date: 20140127
  Serious: Yes (Hospitalization, Other)
  Sender: FDA-Public Use
  Company Number: BR-PFIZER INC-2013097517

PATIENT
  Age: 59 Year
  Sex: Female
  Weight: 59 kg

DRUGS (2)
  1. LYRICA [Suspect]
     Indication: PAIN
     Dosage: 75MG, UNSPECIFIED FREQUENCY
     Route: 048
     Dates: start: 2010, end: 2012
  2. LYRICA [Suspect]
     Dosage: UNK
     Dates: start: 201301

REACTIONS (10)
  - Venous occlusion [Unknown]
  - Diabetes mellitus [Unknown]
  - Hyperacusis [Unknown]
  - Hypertension [Unknown]
  - Thyroid disorder [Unknown]
  - Anxiety [Unknown]
  - Nervousness [Unknown]
  - Headache [Unknown]
  - Nightmare [Recovering/Resolving]
  - Local swelling [Unknown]
